FAERS Safety Report 21208058 (Version 2)
Quarter: 2022Q3

REPORT INFORMATION
  Report Type: Spontaneous
  Country: US (occurrence: US)
  Receive Date: 20220812
  Receipt Date: 20220922
  Transmission Date: 20221027
  Serious: Yes (Hospitalization)
  Sender: FDA-Public Use
  Company Number: US-PARATEK PHARMACEUTICALS, INC.-2022PTK00252

PATIENT
  Sex: Male
  Weight: 130.16 kg

DRUGS (10)
  1. NUZYRA [Suspect]
     Active Substance: OMADACYCLINE
     Indication: Cellulitis staphylococcal
     Dosage: 300 MG, 1X/DAY
     Route: 048
     Dates: start: 20220621, end: 20220712
  2. LIVALO [Concomitant]
     Active Substance: PITAVASTATIN CALCIUM
  3. JANUMET [Concomitant]
     Active Substance: METFORMIN HYDROCHLORIDE\SITAGLIPTIN PHOSPHATE
  4. NEBIVOLOL [Concomitant]
     Active Substance: NEBIVOLOL
  5. BENAZEPRIL HYDROCHLORIDE [Concomitant]
     Active Substance: BENAZEPRIL HYDROCHLORIDE
  6. GABAPENTIN [Concomitant]
     Active Substance: GABAPENTIN
  7. CELECOXIB [Concomitant]
     Active Substance: CELECOXIB
  8. CYCLOBENZAPRINE HYDROCHLORIDE [Concomitant]
     Active Substance: CYCLOBENZAPRINE HYDROCHLORIDE
  9. JARDIANCE [Concomitant]
     Active Substance: EMPAGLIFLOZIN
  10. TRAMADOL HCL [Concomitant]
     Active Substance: TRAMADOL HYDROCHLORIDE

REACTIONS (5)
  - Cellulitis staphylococcal [Not Recovered/Not Resolved]
  - Rash erythematous [Recovered/Resolved]
  - Infection [Not Recovered/Not Resolved]
  - Hypersensitivity [Unknown]
  - Incorrect dose administered [Recovered/Resolved]

NARRATIVE: CASE EVENT DATE: 20220101
